FAERS Safety Report 4523103-X (Version None)
Quarter: 2004Q4

REPORT INFORMATION
  Report Type: 
  Country: None (occurrence: None)
  Receive Date: 20041207
  Receipt Date: 20041207
  Transmission Date: 20050328
  Serious: No
  Sender: FDA-Public Use
  Company Number: None

PATIENT
  Age: 58 Year
  Sex: Female
  Weight: 70.3075 kg

DRUGS (2)
  1. CRESTOR [Suspect]
     Indication: BLOOD CHOLESTEROL INCREASED
     Dosage: 10 MG 1/DAILY
     Dates: start: 20031220, end: 20040420
  2. FOSAMAX [Concomitant]

REACTIONS (13)
  - BENIGN COLONIC POLYP [None]
  - CHANGE OF BOWEL HABIT [None]
  - CHEST PAIN [None]
  - DYSPEPSIA [None]
  - FAECES DISCOLOURED [None]
  - FLATULENCE [None]
  - FUNGAL INFECTION [None]
  - GASTROINTESTINAL DISORDER [None]
  - GASTROINTESTINAL PAIN [None]
  - OESOPHAGEAL SPASM [None]
  - ORAL PAIN [None]
  - SWOLLEN TONGUE [None]
  - TONGUE COATED [None]
